FAERS Safety Report 5815362-8 (Version None)
Quarter: 2008Q3

REPORT INFORMATION
  Report Type: 
  Country: None (occurrence: None)
  Receive Date: 20080718
  Receipt Date: 20080709
  Transmission Date: 20090109
  Serious: Yes (Death)
  Sender: FDA-Public Use
  Company Number: US-PFIZER INC-2008051684

PATIENT
  Sex: Female
  Weight: 79.4 kg

DRUGS (12)
  1. CHANTIX [Suspect]
     Dates: start: 20070502, end: 20070626
  2. MORPHINE [Suspect]
  3. HYDROCODONE BITARTRATE [Suspect]
  4. ALBUTEROL [Concomitant]
  5. PHENYTOIN [Concomitant]
  6. TRIAMCINOLONE [Concomitant]
  7. HALOPERIDOL [Concomitant]
  8. BENAZEPRIL HYDROCHLORIDE [Concomitant]
  9. CLONIDINE [Concomitant]
  10. IBUPROFEN [Concomitant]
  11. COMBIVENT [Concomitant]
  12. BUPROPION HYDROCHLORIDE [Concomitant]

REACTIONS (1)
  - COMPLETED SUICIDE [None]
